FAERS Safety Report 22228857 (Version 1)
Quarter: 2023Q2

REPORT INFORMATION
  Report Type: Spontaneous
  Country: US (occurrence: US)
  Receive Date: 20230419
  Receipt Date: 20230419
  Transmission Date: 20230722
  Serious: Yes (Hospitalization, Other)
  Sender: FDA-Public Use
  Company Number: US-BRISTOL-MYERS SQUIBB COMPANY-2023-051822

PATIENT
  Age: 82 Year
  Sex: Male

DRUGS (8)
  1. OPDUALAG [Suspect]
     Active Substance: NIVOLUMAB\RELATLIMAB-RMBW
     Indication: Malignant melanoma
     Route: 042
     Dates: start: 20230118
  2. DOXYCYCLINE [Concomitant]
     Active Substance: DOXYCYCLINE
     Dosage: ?JUST INCREASED TO TWO PILLS A DAY.?
  3. METFORMIN [Concomitant]
     Active Substance: METFORMIN HYDROCHLORIDE
  4. PRAVASTATIN [Concomitant]
     Active Substance: PRAVASTATIN
  5. CALCITRIOL [Concomitant]
     Active Substance: CALCITRIOL
  6. PROSCAR [Concomitant]
     Active Substance: FINASTERIDE
  7. AVODART [Concomitant]
     Active Substance: DUTASTERIDE
  8. CASODEX [Concomitant]
     Active Substance: BICALUTAMIDE
     Dosage: ?MY TESTOSTERONE IS UP AROUND 800.?

REACTIONS (7)
  - Metastases to central nervous system [Unknown]
  - Psoriasis [Unknown]
  - Peripheral swelling [Unknown]
  - Photosensitivity reaction [Unknown]
  - Fall [Unknown]
  - Metastases to bone [Unknown]
  - Off label use [Unknown]

NARRATIVE: CASE EVENT DATE: 20230101
